FAERS Safety Report 6997406-3 (Version None)
Quarter: 2010Q3

REPORT INFORMATION
  Report Type: 
  Country: None (occurrence: None)
  Receive Date: 20100918
  Receipt Date: 20091007
  Transmission Date: 20110219
  Serious: No
  Sender: FDA-Public Use
  Company Number: US-WYE-H11524209

PATIENT
  Sex: Male
  Weight: 77.63 kg

DRUGS (6)
  1. PRISTIQ [Suspect]
     Indication: DEPRESSION
     Dates: start: 20090101, end: 20090101
  2. PRISTIQ [Suspect]
     Route: 048
     Dates: start: 20090101, end: 20090101
  3. PRISTIQ [Suspect]
     Dosage: DOSE REDUCED TO 75 MG (ONE AND A HALF TABLETS DAILY)
     Dates: start: 20090101
  4. ADDERALL 10 [Concomitant]
  5. ACIPHEX [Concomitant]
  6. LYRICA [Concomitant]

REACTIONS (1)
  - OEDEMA PERIPHERAL [None]
